FAERS Safety Report 6645368-0 (Version None)
Quarter: 2010Q1

REPORT INFORMATION
  Report Type: 
  Country: None (occurrence: None)
  Receive Date: 20100322
  Receipt Date: 20100318
  Transmission Date: 20100710
  Serious: Yes (Hospitalization, Other)
  Sender: FDA-Public Use
  Company Number: DE-MERCK-1003DEU00099

PATIENT
  Sex: Male
  Weight: 70 kg

DRUGS (1)
  1. COZAAR [Suspect]
     Route: 048
     Dates: start: 20091222, end: 20100317

REACTIONS (1)
  - AGRANULOCYTOSIS [None]
